FAERS Safety Report 6052857-9 (Version None)
Quarter: 2009Q1

REPORT INFORMATION
  Report Type: 
  Country: None (occurrence: None)
  Receive Date: 20090127
  Receipt Date: 20090114
  Transmission Date: 20090719
  Serious: Yes (Hospitalization)
  Sender: FDA-Public Use
  Company Number: PHHY2009FR01851

PATIENT
  Sex: Female

DRUGS (12)
  1. TEGRETOL [Suspect]
     Dosage: UNK
     Route: 048
     Dates: start: 20071102, end: 20080522
  2. OMEPRAZOLE [Concomitant]
     Dosage: 40MG TABLETS
     Route: 048
  3. AMLOR [Concomitant]
     Dosage: 5MG TABLETS
     Route: 048
  4. EUPRESSYL [Concomitant]
     Dosage: 30MG TABLETS
     Route: 048
  5. DAFALGAN [Concomitant]
     Dosage: UNK
  6. ZOLOFT [Concomitant]
     Dosage: 50MG TABLETS
     Route: 048
  7. LEVOTHYROX [Concomitant]
     Dosage: 50 UG TABLETS
     Route: 048
  8. KEPPRA [Concomitant]
     Dosage: 500 MG TABLETS
     Route: 048
  9. TRAMADOL HCL [Concomitant]
     Dosage: 100MG LP TABLETS
     Route: 048
  10. LOVENOX [Concomitant]
     Dosage: 0.4ML INJECTIONS
  11. LANTUS [Concomitant]
     Dosage: UNK
  12. NOVORAPID [Concomitant]
     Dosage: UNK

REACTIONS (4)
  - C-REACTIVE PROTEIN INCREASED [None]
  - EOSINOPHILIA [None]
  - PERICARDIAL EFFUSION [None]
  - PLEURAL EFFUSION [None]
